FAERS Safety Report 17804972 (Version 3)
Quarter: 2020Q3

REPORT INFORMATION
  Report Type: Spontaneous
  Country: IT (occurrence: IT)
  Receive Date: 20200520
  Receipt Date: 20200812
  Transmission Date: 20201102
  Serious: Yes (Hospitalization, Other)
  Sender: FDA-Public Use
  Company Number: IT-ALEXION PHARMACEUTICALS INC.-A202006880

PATIENT
  Age: 46 Year
  Sex: Female

DRUGS (1)
  1. STRENSIQ [Suspect]
     Active Substance: ASFOTASE ALFA
     Indication: HYPOPHOSPHATASIA
     Dosage: UNK
     Route: 065
     Dates: start: 201806, end: 201812

REACTIONS (7)
  - Surgery [Unknown]
  - Condition aggravated [Recovering/Resolving]
  - Transaminases increased [Recovering/Resolving]
  - Arthropathy [Unknown]
  - Calcinosis [Not Recovered/Not Resolved]
  - Hepatic cirrhosis [Unknown]
  - Gait disturbance [Unknown]
